FAERS Safety Report 5641042-8 (Version None)
Quarter: 2008Q1

REPORT INFORMATION
  Report Type: 
  Country: None (occurrence: None)
  Receive Date: 20080227
  Receipt Date: 20080225
  Transmission Date: 20080703
  Serious: Yes (Hospitalization)
  Sender: FDA-Public Use
  Company Number: AU-ASTRAZENECA-2008AP01391

PATIENT
  Age: 22573 Day
  Sex: Male

DRUGS (5)
  1. NAROPIN [Suspect]
     Indication: INGUINAL HERNIA REPAIR
     Dates: start: 20070404, end: 20070404
  2. CLEXANE [Concomitant]
     Dates: start: 20070404, end: 20070404
  3. KEFLEX [Concomitant]
     Dates: start: 20070404, end: 20070404
  4. MIDAZOLAM HCL [Concomitant]
     Dates: start: 20070404, end: 20070404
  5. MORPHINE AND ASPIRIN MIXTURE [Concomitant]
     Dates: start: 20070404, end: 20070404

REACTIONS (4)
  - HAEMODYNAMIC TEST NORMAL [None]
  - HYPERHIDROSIS [None]
  - VERTIGO [None]
  - VISUAL DISTURBANCE [None]
